FAERS Safety Report 11549290 (Version 15)
Quarter: 2019Q3

REPORT INFORMATION
  Report Type: Report from Study
  Country: US (occurrence: US)
  Receive Date: 20150924
  Receipt Date: 20190809
  Transmission Date: 20191004
  Serious: Yes (Other)
  Sender: FDA-Public Use
  Company Number: US-INCYTE CORPORATION-2015IN003017

PATIENT

DRUGS (46)
  1. JAKAFI [Suspect]
     Active Substance: RUXOLITINIB
     Dosage: 20 MG, BID
     Route: 048
  2. HYDREA [Suspect]
     Active Substance: HYDROXYUREA
     Dosage: 500 MILLIGRAM TUES AND THRUS
     Route: 065
     Dates: start: 20190626, end: 20190709
  3. ATENOLOL. [Concomitant]
     Active Substance: ATENOLOL
     Indication: HYPERTENSION
     Dosage: 25 MG, QD
     Route: 065
     Dates: start: 20140910, end: 20180206
  4. CRESTOR [Concomitant]
     Active Substance: ROSUVASTATIN CALCIUM
     Indication: PRODUCT USED FOR UNKNOWN INDICATION
     Dosage: 5 MG, QD
     Route: 065
  5. OCUVITE [Concomitant]
     Active Substance: VITAMINS
     Indication: PRODUCT USED FOR UNKNOWN INDICATION
     Dosage: UNK
     Route: 065
  6. HYDROCODONE BITARTRATE AND ACETAMINOPHEN [Concomitant]
     Active Substance: ACETAMINOPHEN\HYDROCODONE BITARTRATE
     Indication: PAIN
     Dosage: 1 TAB, PRN
     Route: 065
     Dates: start: 20140910, end: 20180206
  7. TAMSULOSIN [Concomitant]
     Active Substance: TAMSULOSIN
     Indication: BENIGN PROSTATIC HYPERPLASIA
     Dosage: 0.4 MG, QD
     Route: 005
     Dates: start: 20171205
  8. JAKAFI [Suspect]
     Active Substance: RUXOLITINIB
     Dosage: 20 MG, BID
     Route: 048
     Dates: start: 20150624, end: 20171018
  9. HYDREA [Suspect]
     Active Substance: HYDROXYUREA
     Indication: POLYCYTHAEMIA VERA
     Dosage: 1000 MG, QD
     Route: 065
     Dates: start: 20150624, end: 20150715
  10. HYDREA [Suspect]
     Active Substance: HYDROXYUREA
     Dosage: 500 MG, BID
     Route: 065
     Dates: start: 20181215, end: 20190304
  11. HYDREA [Suspect]
     Active Substance: HYDROXYUREA
     Dosage: 1000 MILLIGRAM, QOD
     Route: 065
     Dates: start: 20190618, end: 20190625
  12. HYDREA [Suspect]
     Active Substance: HYDROXYUREA
     Dosage: 1000 MILLIGRAM M,W,F,S,S
     Route: 065
     Dates: start: 20190626, end: 20190709
  13. LISINOPRIL. [Concomitant]
     Active Substance: LISINOPRIL
     Dosage: 20 MG, QD
     Route: 065
     Dates: start: 20180926
  14. NORCO [Concomitant]
     Active Substance: ACETAMINOPHEN\HYDROCODONE BITARTRATE
     Indication: PAIN
     Dosage: 5/325 MG, PRN
     Route: 065
  15. LORAZEPAM. [Concomitant]
     Active Substance: LORAZEPAM
     Indication: ANXIETY
     Dosage: 0.5 MG, PRN
     Route: 065
     Dates: start: 20140910, end: 20180206
  16. LOSARTAN. [Concomitant]
     Active Substance: LOSARTAN
     Indication: HYPERTENSION
     Dosage: 50 MG, QD
     Route: 065
     Dates: start: 20170703, end: 20180926
  17. AUGMENTIN [Concomitant]
     Active Substance: AMOXICILLIN\CLAVULANATE POTASSIUM
     Indication: SINUSITIS
     Dosage: 500 MG, BID
     Route: 065
     Dates: start: 20180501, end: 20180522
  18. JAKAFI [Suspect]
     Active Substance: RUXOLITINIB
     Indication: MYELOFIBROSIS
     Dosage: 20 MG, BID
     Route: 048
     Dates: start: 20140924
  19. JAKAFI [Suspect]
     Active Substance: RUXOLITINIB
     Dosage: 10 MG, BID
     Route: 048
     Dates: start: 20171019, end: 20171031
  20. HYDREA [Suspect]
     Active Substance: HYDROXYUREA
     Dosage: 500 MG, QD
     Route: 065
  21. HYDREA [Suspect]
     Active Substance: HYDROXYUREA
     Dosage: 500 MG, BID EVEN DAYS
     Route: 065
     Dates: start: 20171019, end: 20171031
  22. VITAMIN C [Concomitant]
     Active Substance: ASCORBIC ACID
     Indication: PRODUCT USED FOR UNKNOWN INDICATION
     Dosage: UNK
     Route: 065
  23. HYDREA [Suspect]
     Active Substance: HYDROXYUREA
     Dosage: 500 MG, TID ODD DAYS
     Route: 065
     Dates: start: 20171019, end: 20171031
  24. HYDREA [Suspect]
     Active Substance: HYDROXYUREA
     Dosage: 500 MG, BID
     Route: 065
     Dates: start: 20190521, end: 20190604
  25. ATENOLOL. [Concomitant]
     Active Substance: ATENOLOL
     Dosage: 12.5 MG, QOD
     Route: 065
  26. HYDREA [Suspect]
     Active Substance: HYDROXYUREA
     Dosage: 500 MG, BID
     Route: 065
     Dates: start: 20171101, end: 20181212
  27. HYDREA [Suspect]
     Active Substance: HYDROXYUREA
     Dosage: 500 MILLIGRAM TUES, AND THURS
     Route: 065
     Dates: start: 20190722
  28. METRONIDAZOLE                      /00012502/ [Concomitant]
     Active Substance: METRONIDAZOLE BENZOATE
     Indication: ROSACEA
     Dosage: UNK, PRN
     Route: 061
     Dates: start: 20160428, end: 20170703
  29. KEFLEX [Concomitant]
     Active Substance: CEPHALEXIN
     Indication: CELLULITIS
     Dosage: 1 TABLET; QD
     Route: 065
     Dates: start: 20181212, end: 201812
  30. JAKAFI [Suspect]
     Active Substance: RUXOLITINIB
     Indication: POLYCYTHAEMIA VERA
     Dosage: 20 MG, BID
     Route: 048
     Dates: start: 20140914
  31. HYDREA [Suspect]
     Active Substance: HYDROXYUREA
     Dosage: 500 MG, BID
     Route: 065
     Dates: start: 20190309, end: 20190514
  32. HYDREA [Suspect]
     Active Substance: HYDROXYUREA
     Dosage: 500 MG, BID
     Route: 065
     Dates: start: 20190618
  33. HYDREA [Suspect]
     Active Substance: HYDROXYUREA
     Dosage: 500 MILLIGRAM, QOD
     Route: 065
     Dates: start: 20190618, end: 20190625
  34. JAKAFI [Suspect]
     Active Substance: RUXOLITINIB
     Dosage: 15 MG, BID
     Route: 048
     Dates: start: 20141001, end: 20150623
  35. JAKAFI [Suspect]
     Active Substance: RUXOLITINIB
     Dosage: 5 MG, QD
     Route: 065
     Dates: start: 20171116, end: 20171128
  36. JAKAFI [Suspect]
     Active Substance: RUXOLITINIB
     Dosage: 5 MG, QOD
     Route: 065
     Dates: start: 20171129, end: 20180109
  37. HYDREA [Suspect]
     Active Substance: HYDROXYUREA
     Dosage: 500 MG, BID
     Route: 065
     Dates: start: 20150716, end: 20171010
  38. HYDREA [Suspect]
     Active Substance: HYDROXYUREA
     Dosage: 1000 MILLIGRAM M,W,F,S,S
     Route: 065
     Dates: start: 20190722
  39. ASPIRIN. [Concomitant]
     Active Substance: ASPIRIN
     Indication: POLYCYTHAEMIA VERA
     Dosage: 81 MG, QD
     Route: 065
     Dates: start: 20141001
  40. RANIBIZUMAB. [Concomitant]
     Active Substance: RANIBIZUMAB
     Indication: RETINOPATHY
     Dosage: UNK
     Route: 065
     Dates: start: 20150416, end: 20160330
  41. JAKAFI [Suspect]
     Active Substance: RUXOLITINIB
     Dosage: 5 MG, BID
     Route: 048
     Dates: start: 20171101, end: 20171115
  42. HYDREA [Suspect]
     Active Substance: HYDROXYUREA
     Dosage: 1500 MG, QD
     Route: 065
     Dates: start: 20171011, end: 20171018
  43. LISINOPRIL. [Concomitant]
     Active Substance: LISINOPRIL
     Indication: HYPERTENSION
     Dosage: 20 MG, QD
     Route: 065
     Dates: start: 20140910, end: 20170703
  44. AMLODIPINE [Concomitant]
     Active Substance: AMLODIPINE BESYLATE
     Indication: HYPERTENSION
     Dosage: 10 MG, QD
     Route: 065
     Dates: start: 20140910
  45. ROSUVASTATIN. [Concomitant]
     Active Substance: ROSUVASTATIN
     Indication: HYPERLIPIDAEMIA
     Dosage: 5 MG, QD
     Route: 065
     Dates: start: 20140910
  46. PROMETHAZINE [Concomitant]
     Active Substance: PROMETHAZINE HYDROCHLORIDE
     Indication: PRODUCT USED FOR UNKNOWN INDICATION
     Dosage: UNK
     Route: 065

REACTIONS (19)
  - Cellulitis [Recovered/Resolved]
  - Thrombocytopenia [Recovered/Resolved]
  - Rash maculo-papular [Not Recovered/Not Resolved]
  - Blood lactate dehydrogenase increased [Unknown]
  - Neutrophil count decreased [Recovered/Resolved]
  - Erythema [Unknown]
  - Blood lactate dehydrogenase increased [Not Recovered/Not Resolved]
  - White blood cell count increased [Unknown]
  - Rash macular [Unknown]
  - Blood creatinine increased [Recovered/Resolved]
  - Rosacea [Not Recovered/Not Resolved]
  - Productive cough [Recovered/Resolved]
  - Skin lesion [Recovered/Resolved]
  - Neuropathy peripheral [Recovered/Resolved]
  - Aphthous ulcer [Recovered/Resolved]
  - Lymphocyte count decreased [Recovered/Resolved]
  - Neutrophil count increased [Recovered/Resolved]
  - Mouth ulceration [Unknown]
  - Nausea [Not Recovered/Not Resolved]

NARRATIVE: CASE EVENT DATE: 20150513
